FAERS Safety Report 7130120-2 (Version None)
Quarter: 2010Q4

REPORT INFORMATION
  Report Type: 
  Country: None (occurrence: None)
  Receive Date: 20101201
  Receipt Date: 20090603
  Transmission Date: 20110411
  Serious: No
  Sender: FDA-Public Use
  Company Number: 2009BI016965

PATIENT
  Age: 51 Year
  Sex: Female

DRUGS (1)
  1. TYSABRI [Suspect]
     Indication: MULTIPLE SCLEROSIS
     Route: 042
     Dates: start: 20081007

REACTIONS (17)
  - ARTHRITIS [None]
  - BALANCE DISORDER [None]
  - COORDINATION ABNORMAL [None]
  - DEPRESSED MOOD [None]
  - DYSGRAPHIA [None]
  - EPISTAXIS [None]
  - FALL [None]
  - FEAR OF FALLING [None]
  - GAIT DISTURBANCE [None]
  - GENERAL PHYSICAL HEALTH DETERIORATION [None]
  - HYPOAESTHESIA [None]
  - LIP SWELLING [None]
  - MUSCLE SPASMS [None]
  - PAIN IN EXTREMITY [None]
  - PROCEDURAL HEADACHE [None]
  - UPPER LIMB FRACTURE [None]
  - URINARY TRACT INFECTION [None]
